FAERS Safety Report 7350184-0 (Version None)
Quarter: 2011Q1

REPORT INFORMATION
  Report Type: 
  Country: None (occurrence: None)
  Receive Date: 20110314
  Receipt Date: 20110307
  Transmission Date: 20110831
  Serious: Yes (Congenital Anomaly)
  Sender: FDA-Public Use
  Company Number: B0704254A

PATIENT
  Sex: Male
  Weight: 2.9 kg

DRUGS (6)
  1. TERCIAN [Suspect]
     Indication: PRODUCT USED FOR UNKNOWN INDICATION
     Dosage: 15DROP TWICE PER DAY
     Route: 064
     Dates: end: 20101201
  2. LEVOTHYROX [Suspect]
     Indication: PRODUCT USED FOR UNKNOWN INDICATION
     Route: 064
     Dates: end: 20110115
  3. FLIXOTIDE [Suspect]
     Indication: PRODUCT USED FOR UNKNOWN INDICATION
     Route: 064
     Dates: end: 20110115
  4. XANAX [Suspect]
     Indication: PRODUCT USED FOR UNKNOWN INDICATION
     Dosage: .5MG EIGHT TIMES PER DAY
     Route: 064
     Dates: end: 20110115
  5. ZYPREXA [Suspect]
     Indication: PRODUCT USED FOR UNKNOWN INDICATION
     Dosage: 10MG PER DAY
     Route: 064
     Dates: end: 20101201
  6. PROZAC [Suspect]
     Indication: PRODUCT USED FOR UNKNOWN INDICATION
     Dosage: 20MG PER DAY
     Route: 064
     Dates: end: 20101201

REACTIONS (4)
  - URINARY TRACT INFECTION NEONATAL [None]
  - IRIS COLOBOMA [None]
  - RETINAL COLOBOMA [None]
  - MATERNAL DRUGS AFFECTING FOETUS [None]
